FAERS Safety Report 11866856 (Version 3)
Quarter: 2016Q1

REPORT INFORMATION
  Report Type: Report from Study
  Country: KR (occurrence: KR)
  Receive Date: 20151224
  Receipt Date: 20160113
  Transmission Date: 20160526
  Serious: Yes (Hospitalization, Other)
  Sender: FDA-Public Use
  Company Number: PHHY2015KR164977

PATIENT
  Age: 75 Year
  Sex: Male
  Weight: 55 kg

DRUGS (10)
  1. PRIVITUSS [Concomitant]
     Indication: LIVER FUNCTION TEST ABNORMAL
  2. LEGALON [Concomitant]
     Active Substance: MILK THISTLE
     Indication: LIVER FUNCTION TEST ABNORMAL
     Dosage: 420 MG, UNK
     Route: 065
     Dates: start: 20150830, end: 20150831
  3. ASTHMA//SALBUTAMOL SULFATE [Concomitant]
     Indication: CHRONIC OBSTRUCTIVE PULMONARY DISEASE
     Dosage: 800 MG, UNK
     Route: 065
     Dates: start: 20150825, end: 20150831
  4. CEFOLATAM [Concomitant]
     Active Substance: CEFOPERAZONE SODIUM\SULBACTAM SODIUM
     Indication: CHRONIC OBSTRUCTIVE PULMONARY DISEASE
     Dosage: 1 G, UNK
     Route: 065
     Dates: start: 20150825, end: 20150827
  5. HEPA-MERZ//ORNITHINE ASPARTATE [Concomitant]
     Indication: CHRONIC OBSTRUCTIVE PULMONARY DISEASE
  6. HEPA-MERZ//ORNITHINE ASPARTATE [Concomitant]
     Indication: LIVER FUNCTION TEST ABNORMAL
     Dosage: 20 ML, UNK
     Route: 065
     Dates: start: 20150827, end: 20150828
  7. PRIVITUSS [Concomitant]
     Indication: CHRONIC OBSTRUCTIVE PULMONARY DISEASE
     Dosage: 24 ML, UNK
     Route: 065
     Dates: start: 20150825, end: 20150828
  8. PENNEL [Concomitant]
     Indication: LIVER FUNCTION TEST ABNORMAL
     Dosage: 55 MG, UNK
     Route: 065
     Dates: start: 20150827, end: 20150831
  9. ONBREZ BREEZHALER [Suspect]
     Active Substance: INDACATEROL
     Indication: CHRONIC OBSTRUCTIVE PULMONARY DISEASE
     Dosage: 150 UG, UNK
     Route: 055
  10. SOLU-MEDROL [Concomitant]
     Active Substance: METHYLPREDNISOLONE SODIUM SUCCINATE
     Indication: CHRONIC OBSTRUCTIVE PULMONARY DISEASE
     Dosage: 250 MG, UNK
     Route: 065
     Dates: start: 20150825, end: 20150827

REACTIONS (7)
  - C-reactive protein increased [Unknown]
  - Dyspnoea [Recovered/Resolved]
  - Pneumonia [Recovered/Resolved]
  - Red blood cell sedimentation rate increased [Unknown]
  - Chronic obstructive pulmonary disease [Recovered/Resolved]
  - Aspartate aminotransferase increased [Unknown]
  - Alanine aminotransferase increased [Unknown]

NARRATIVE: CASE EVENT DATE: 20150823
